FAERS Safety Report 12833884 (Version 1)
Quarter: 2016Q4

REPORT INFORMATION
  Report Type: Spontaneous
  Country: DE (occurrence: DE)
  Receive Date: 20161010
  Receipt Date: 20161010
  Transmission Date: 20170207
  Serious: Yes (Hospitalization, Disabling)
  Sender: FDA-Public Use
  Company Number: DE-MYLANLABS-2016M1043185

PATIENT

DRUGS (2)
  1. IBUPROFEN. [Concomitant]
     Active Substance: IBUPROFEN
     Indication: RENAL PAIN
     Dosage: 600 MG, QD (DAILY DOSE: 600 MG MILLGRAM(S) EVERY DAYS)
     Route: 048
     Dates: start: 20150116, end: 20150122
  2. CIPROFLOXACIN. [Suspect]
     Active Substance: CIPROFLOXACIN
     Indication: RENAL PAIN
     Dosage: 250 MG, BID (DAILY DOSE: 500 MG MILLGRAM(S) EVERY DAYS)
     Route: 048
     Dates: start: 20150116, end: 20150122

REACTIONS (9)
  - Fatigue [Not Recovered/Not Resolved]
  - Hepatic enzyme increased [Not Recovered/Not Resolved]
  - Blood glucose increased [Not Recovered/Not Resolved]
  - Muscle tightness [Not Recovered/Not Resolved]
  - Tendon pain [Not Recovered/Not Resolved]
  - Arthralgia [Not Recovered/Not Resolved]
  - Cholestasis [Not Recovered/Not Resolved]
  - Dizziness [Not Recovered/Not Resolved]
  - Abnormal faeces [Not Recovered/Not Resolved]

NARRATIVE: CASE EVENT DATE: 20150116
